FAERS Safety Report 4798383-6 (Version None)
Quarter: 2005Q4

REPORT INFORMATION
  Report Type: 
  Country: None (occurrence: None)
  Receive Date: 20051011
  Receipt Date: 20050928
  Transmission Date: 20060501
  Serious: Yes (Other)
  Sender: FDA-Public Use
  Company Number: USA-2005-0021392

PATIENT
  Age: 32 Year
  Sex: Male

DRUGS (2)
  1. OXYCONTIN [Suspect]
     Indication: INJURY
     Dates: start: 20010101
  2. HEROIN (DIAMORPHINE) [Suspect]

REACTIONS (6)
  - DRUG ABUSER [None]
  - DRUG DEPENDENCE [None]
  - INTENTIONAL DRUG MISUSE [None]
  - OVERDOSE [None]
  - SUICIDAL IDEATION [None]
  - SUICIDE ATTEMPT [None]
